FAERS Safety Report 24682611 (Version 2)
Quarter: 2025Q3

REPORT INFORMATION
  Report Type: Spontaneous
  Country: US (occurrence: US)
  Receive Date: 20241130
  Receipt Date: 20250809
  Transmission Date: 20251021
  Serious: Yes (Other)
  Sender: ALEXION PHARMACEUTICALS
  Company Number: US-ASTRAZENECA-202411GLO009534US

PATIENT
  Age: 48 Year
  Sex: Female

DRUGS (1)
  1. OSIMERTINIB [Suspect]
     Active Substance: OSIMERTINIB
     Indication: Lung adenocarcinoma

REACTIONS (4)
  - Metastases to lymph nodes [Unknown]
  - Metastases to spine [Unknown]
  - Drug resistance [Unknown]
  - Malignant neoplasm progression [Unknown]
